FAERS Safety Report 18174212 (Version 1)
Quarter: 2020Q3

REPORT INFORMATION
  Report Type: Spontaneous
  Country: US (occurrence: US)
  Receive Date: 20200819
  Receipt Date: 20200819
  Transmission Date: 20201103
  Serious: Yes (Death)
  Sender: FDA-Public Use
  Company Number: None

PATIENT
  Age: 61 Year
  Sex: Male

DRUGS (1)
  1. ZOLEDRON ACID BAG 4MG/100ML [Suspect]
     Active Substance: ZOLEDRONIC ACID
     Dosage: FREQUENCY: OTHER
     Route: 042
     Dates: start: 20200422, end: 20200805

REACTIONS (1)
  - Death [None]

NARRATIVE: CASE EVENT DATE: 20200818
